FAERS Safety Report 12955542 (Version 1)
Quarter: 2016Q4

REPORT INFORMATION
  Report Type: Spontaneous
  Country: US (occurrence: US)
  Receive Date: 20161118
  Receipt Date: 20161118
  Transmission Date: 20170207
  Serious: No
  Sender: FDA-Public Use
  Company Number: US-PERRIGO-16US019592

PATIENT
  Age: 82 Year
  Sex: Male
  Weight: 72.56 kg

DRUGS (4)
  1. TERAZOSIN [Concomitant]
     Active Substance: TERAZOSIN\TERAZOSIN HYDROCHLORIDE
     Indication: PROSTATOMEGALY
     Route: 048
  2. METOPROLOL. [Concomitant]
     Active Substance: METOPROLOL
     Indication: HYPERTENSION
     Dosage: UNK
     Route: 048
  3. DONEPEZIL. [Concomitant]
     Active Substance: DONEPEZIL
     Indication: COGNITIVE DISORDER
     Dosage: UNK
     Route: 048
     Dates: start: 201605
  4. POLYETHYLENE GLYCOL 3350. [Suspect]
     Active Substance: POLYETHYLENE GLYCOL 3350
     Indication: CONSTIPATION
     Dosage: 17 G, QHS
     Route: 048
     Dates: start: 201606

REACTIONS (2)
  - Incorrect drug administration duration [Unknown]
  - Flatulence [Unknown]

NARRATIVE: CASE EVENT DATE: 201606
